FAERS Safety Report 25193890 (Version 2)
Quarter: 2025Q3

REPORT INFORMATION
  Report Type: Spontaneous
  Country: EU (occurrence: EU)
  Receive Date: 20250414
  Receipt Date: 20250904
  Transmission Date: 20251021
  Serious: Yes (Congenital Anomaly, Other)
  Sender: VERTEX
  Company Number: None

PATIENT
  Sex: Female

DRUGS (2)
  1. ELEXACAFTOR\IVACAFTOR\TEZACAFTOR [Suspect]
     Active Substance: ELEXACAFTOR\IVACAFTOR\TEZACAFTOR
     Indication: Cystic fibrosis
     Route: 064
     Dates: start: 20230413
  2. KALYDECO [Suspect]
     Active Substance: IVACAFTOR
     Indication: Cystic fibrosis
     Route: 064
     Dates: start: 20230413

REACTIONS (1)
  - Fallot^s tetralogy [Not Recovered/Not Resolved]

NARRATIVE: CASE EVENT DATE: 20250130
